FAERS Safety Report 12984457 (Version 1)
Quarter: 2016Q4

REPORT INFORMATION
  Report Type: Spontaneous
  Country: FI (occurrence: FI)
  Receive Date: 20161129
  Receipt Date: 20161129
  Transmission Date: 20170207
  Serious: Yes (Other)
  Sender: FDA-Public Use
  Company Number: FI-SA-2016SA212493

PATIENT
  Age: 61 Year
  Sex: Male

DRUGS (11)
  1. DAPTOMYCIN. [Concomitant]
     Active Substance: DAPTOMYCIN
     Route: 065
  2. VANCOMYCIN [Suspect]
     Active Substance: VANCOMYCIN
     Indication: DEVICE RELATED INFECTION
     Route: 065
  3. CEFUROXIME. [Suspect]
     Active Substance: CEFUROXIME
     Route: 065
  4. MEROPENEM. [Suspect]
     Active Substance: MEROPENEM
     Route: 065
  5. RIFAMPICIN [Suspect]
     Active Substance: RIFAMPIN
     Indication: DEVICE RELATED INFECTION
     Route: 065
  6. LEVOFLOXACIN. [Concomitant]
     Active Substance: LEVOFLOXACIN
     Route: 065
  7. CLOXACILLIN [Suspect]
     Active Substance: CLOXACILLIN
     Route: 065
  8. NAPROXEN. [Concomitant]
     Active Substance: NAPROXEN
     Dosage: ONE TO THREE TIMES DAILY
     Route: 065
  9. PARACETAMOL/CODEINE PHOSPHATE [Concomitant]
  10. PANTOPRAZOLE [Suspect]
     Active Substance: PANTOPRAZOLE SODIUM
     Route: 065
  11. METRONIDAZOLE. [Suspect]
     Active Substance: METRONIDAZOLE
     Indication: DEVICE RELATED INFECTION
     Route: 065

REACTIONS (13)
  - Leukocytosis [Recovering/Resolving]
  - Rash [Recovering/Resolving]
  - Pyrexia [Recovering/Resolving]
  - C-reactive protein increased [Recovering/Resolving]
  - Toxic epidermal necrolysis [Recovering/Resolving]
  - Alanine aminotransferase increased [Recovering/Resolving]
  - Skin exfoliation [Recovering/Resolving]
  - Eosinophilia [Recovering/Resolving]
  - Dermatitis [Recovering/Resolving]
  - Blood creatinine increased [Recovering/Resolving]
  - Drug reaction with eosinophilia and systemic symptoms [Recovering/Resolving]
  - Blister [Recovering/Resolving]
  - Rash erythematous [Recovering/Resolving]
